FAERS Safety Report 6645506-X (Version None)
Quarter: 2010Q1

REPORT INFORMATION
  Report Type: 
  Country: None (occurrence: None)
  Receive Date: 20100323
  Receipt Date: 20100311
  Transmission Date: 20100710
  Serious: No
  Sender: FDA-Public Use
  Company Number: US-BIOGENIDEC-2008BI027826

PATIENT
  Age: 46 Year
  Sex: Female

DRUGS (1)
  1. TYSABRI [Suspect]
     Indication: MULTIPLE SCLEROSIS
     Route: 042
     Dates: start: 20081003

REACTIONS (5)
  - GINGIVAL RECESSION [None]
  - SENSITIVITY OF TEETH [None]
  - TEETH BRITTLE [None]
  - TONGUE ULCERATION [None]
  - TOOTHACHE [None]
